FAERS Safety Report 6917648-2 (Version None)
Quarter: 2010Q3

REPORT INFORMATION
  Report Type: 
  Country: None (occurrence: None)
  Receive Date: 20100810
  Receipt Date: 20080509
  Transmission Date: 20110219
  Serious: Yes (Other)
  Sender: FDA-Public Use
  Company Number: US-WYE-H04063908

PATIENT
  Age: 58 Year
  Sex: Female

DRUGS (2)
  1. PROTONIX [Suspect]
     Indication: GASTROOESOPHAGEAL REFLUX DISEASE
     Route: 042
  2. VANCOMYCIN [Concomitant]
     Dosage: UNKNOWN
     Route: 042

REACTIONS (1)
  - THROMBOSIS [None]
